FAERS Safety Report 16234884 (Version 4)
Quarter: 2019Q3

REPORT INFORMATION
  Report Type: Spontaneous
  Country: US (occurrence: US)
  Receive Date: 20190424
  Receipt Date: 20190710
  Transmission Date: 20191004
  Serious: Yes (Hospitalization, Other)
  Sender: FDA-Public Use
  Company Number: US-PFIZER INC-2019169838

PATIENT
  Age: 63 Year
  Sex: Male

DRUGS (1)
  1. XELJANZ XR [Suspect]
     Active Substance: TOFACITINIB CITRATE
     Dosage: 11 MG, 1X/DAY
     Route: 048
     Dates: start: 20190215

REACTIONS (10)
  - Headache [Recovering/Resolving]
  - Dyspnoea [Unknown]
  - Product residue present [Unknown]
  - Arthralgia [Unknown]
  - Back pain [Not Recovered/Not Resolved]
  - Sinus disorder [Recovering/Resolving]
  - Pneumonia [Unknown]
  - Hypotension [Unknown]
  - Fall [Unknown]
  - Drooling [Unknown]

NARRATIVE: CASE EVENT DATE: 2019
